FAERS Safety Report 4961707-0 (Version None)
Quarter: 2006Q1

REPORT INFORMATION
  Report Type: 
  Country: None (occurrence: None)
  Receive Date: 20060329
  Receipt Date: 20060314
  Transmission Date: 20060701
  Serious: Yes (Death, Disabling, Other)
  Sender: FDA-Public Use
  Company Number: MAG-2006-0000433

PATIENT
  Age: 62 Year
  Sex: Female

DRUGS (8)
  1. OXYCODONE HCL [Suspect]
     Indication: CANCER PAIN
     Dosage: SEE IMAGE
     Route: 048
     Dates: start: 20050603, end: 20050609
  2. OXYCODONE HCL [Suspect]
     Indication: CANCER PAIN
     Dosage: SEE IMAGE
     Route: 048
     Dates: start: 20050610, end: 20050627
  3. NOVAMIN (PROCHLORPERAZINE) [Concomitant]
  4. DEPAKENE [Concomitant]
  5. MAGNESIUM OXIDE [Concomitant]
  6. FAMOTIDINE [Concomitant]
  7. SOLU-MEDROL [Concomitant]
  8. MORPHINE [Concomitant]

REACTIONS (4)
  - CONDITION AGGRAVATED [None]
  - HEPATIC FUNCTION ABNORMAL [None]
  - MALIGNANT NEOPLASM PROGRESSION [None]
  - MULTI-ORGAN FAILURE [None]
